FAERS Safety Report 9652327 (Version 1)
Quarter: 2013Q4

REPORT INFORMATION
  Report Type: Spontaneous
  Country: US (occurrence: US)
  Receive Date: 20131029
  Receipt Date: 20131029
  Transmission Date: 20140711
  Serious: No
  Sender: FDA-Public Use
  Company Number: US-BIOGENIDEC-2013BI075576

PATIENT
  Age: 52 Year
  Sex: Female

DRUGS (5)
  1. TECFIDERA [Suspect]
     Indication: MULTIPLE SCLEROSIS
     Route: 048
     Dates: start: 20130617, end: 201307
  2. NAPROSYN [Concomitant]
  3. VIT D3 [Concomitant]
  4. CLARINEX [Concomitant]
  5. GABAPENTIN [Concomitant]

REACTIONS (3)
  - Nausea [Recovered/Resolved]
  - Abdominal pain [Unknown]
  - Abdominal pain upper [Not Recovered/Not Resolved]
